FAERS Safety Report 19884992 (Version 1)
Quarter: 2021Q3

REPORT INFORMATION
  Report Type: Spontaneous
  Country: US (occurrence: US)
  Receive Date: 20210927
  Receipt Date: 20210927
  Transmission Date: 20211014
  Serious: Yes (Hospitalization, Disabling)
  Sender: FDA-Public Use
  Company Number: None

PATIENT
  Age: 81 Year
  Sex: Female
  Weight: 68 kg

DRUGS (1)
  1. APIXABAN [Suspect]
     Active Substance: APIXABAN
     Indication: ATRIAL FIBRILLATION
     Route: 048
     Dates: start: 20210324, end: 20210813

REACTIONS (8)
  - Splenic rupture [None]
  - Disease complication [None]
  - Unresponsive to stimuli [None]
  - Dyspnoea [None]
  - Haemoperitoneum [None]
  - Therapy interrupted [None]
  - Cerebral infarction [None]
  - Oedema [None]

NARRATIVE: CASE EVENT DATE: 20210813
